FAERS Safety Report 7490495-1 (Version None)
Quarter: 2011Q2

REPORT INFORMATION
  Report Type: 
  Country: None (occurrence: None)
  Receive Date: 20110517
  Receipt Date: 20110517
  Transmission Date: 20111010
  Serious: Yes (Life-Threatening, Hospitalization, Disabling)
  Sender: FDA-Public Use
  Company Number: None

PATIENT
  Age: 13 Year
  Sex: Male
  Weight: 46.2669 kg

DRUGS (1)
  1. ZOLOFT [Suspect]
     Indication: DEPRESSION
     Dosage: 20MG DAILY WITH AFTER EFFECTS
     Dates: start: 20110215, end: 20110330

REACTIONS (3)
  - SUICIDAL IDEATION [None]
  - MANIA [None]
  - INTENTIONAL SELF-INJURY [None]
